FAERS Safety Report 5731878-7 (Version None)
Quarter: 2008Q2

REPORT INFORMATION
  Report Type: 
  Country: None (occurrence: None)
  Receive Date: 20080508
  Receipt Date: 20080501
  Transmission Date: 20081010
  Serious: Yes (Hospitalization)
  Sender: FDA-Public Use
  Company Number: US-ABBOTT-08P-163-0450039-00

PATIENT
  Sex: Male
  Weight: 61.29 kg

DRUGS (14)
  1. HUMIRA [Suspect]
     Indication: RHEUMATOID ARTHRITIS
     Route: 058
     Dates: start: 20060510
  2. NOVALIN [Concomitant]
     Indication: DIABETES MELLITUS
     Dosage: 10 UNITS 70/30 EVERY MORNING AND 5 UNITS 70 WITH DINNER
     Route: 058
  3. INSULIN [Concomitant]
     Indication: DIABETES MELLITUS
     Dosage: 1 U TAKEN IF BLOOD SUGAR 180 OR GREATER
     Route: 058
  4. LEVOTHYROXINE SODIUM [Concomitant]
     Indication: THYROID DISORDER
     Route: 048
  5. IRBESARTAN [Concomitant]
     Indication: RENAL IMPAIRMENT
     Route: 048
  6. SIMVASTATIN [Concomitant]
     Indication: DRUG USE FOR UNKNOWN INDICATION
     Dosage: 20 MG DAILY
     Route: 048
  7. AMLODIPINE BESILATE [Concomitant]
     Indication: DRUG USE FOR UNKNOWN INDICATION
     Dosage: 10 MG DAILY
     Route: 048
     Dates: start: 20060101
  8. VALSARTAN [Concomitant]
     Indication: DRUG USE FOR UNKNOWN INDICATION
     Dosage: 320 MG DAILY
     Route: 048
  9. SEVELAMER [Concomitant]
     Indication: VITAMIN SUPPLEMENTATION
     Dosage: 800 MG DAILY
     Route: 048
  10. SEVELAMER [Concomitant]
     Indication: RENAL DISORDER
  11. DOXAZOSIN MESYLATE [Concomitant]
     Indication: BLOOD PRESSURE INCREASED
     Dosage: 1 MG DAILY
     Route: 048
  12. DOXAZOSIN MESYLATE [Concomitant]
     Indication: RENAL IMPAIRMENT
  13. CALCIUM WITH VITAMIN D [Concomitant]
     Indication: VITAMIN SUPPLEMENTATION
     Dosage: 500MG CALCIUM/200 IU VITAMIN D
     Route: 048
     Dates: start: 20060101
  14. EPOGEN [Concomitant]
     Indication: RENAL IMPAIRMENT

REACTIONS (12)
  - CHEST INJURY [None]
  - EXCORIATION [None]
  - FALL [None]
  - HERNIA [None]
  - JOINT INJURY [None]
  - MUSCLE SPASMS [None]
  - MUSCULOSKELETAL PAIN [None]
  - OEDEMA PERIPHERAL [None]
  - OSTEOARTHRITIS [None]
  - PAIN IN EXTREMITY [None]
  - RENAL IMPAIRMENT [None]
  - RHEUMATOID ARTHRITIS [None]
